FAERS Safety Report 7360784-X (Version None)
Quarter: 2011Q1

REPORT INFORMATION
  Report Type: 
  Country: None (occurrence: None)
  Receive Date: 20110318
  Receipt Date: 20110307
  Transmission Date: 20110831
  Serious: Yes (Other)
  Sender: FDA-Public Use
  Company Number: SE-SANOFI-AVENTIS-2011SA013847

PATIENT
  Age: 65 Year
  Sex: Male

DRUGS (11)
  1. KALEORID [Concomitant]
  2. LEVOTHYROXINE SODIUM [Concomitant]
  3. DIAZEPAM [Concomitant]
  4. BISOPROLOL [Concomitant]
  5. OMEPRAZOLE [Concomitant]
  6. WARAN [Concomitant]
  7. PAPAVERIN [Concomitant]
  8. AMILORIDE HYDROCHLORIDE [Concomitant]
  9. GAVISCON [Concomitant]
  10. ATARAX [Concomitant]
  11. MULTAQ [Suspect]
     Indication: ATRIAL FIBRILLATION
     Route: 048
     Dates: start: 20100615, end: 20101117

REACTIONS (1)
  - HEPATIC CIRRHOSIS [None]
